FAERS Safety Report 15049437 (Version 1)
Quarter: 2018Q2

REPORT INFORMATION
  Report Type: Spontaneous
  Country: US (occurrence: US)
  Receive Date: 20180601
  Receipt Date: 20180601
  Transmission Date: 20180711
  Serious: Yes (Hospitalization)
  Sender: FDA-Public Use
  Company Number: None

PATIENT
  Age: 50 Year
  Sex: Male
  Weight: 91.2 kg

DRUGS (4)
  1. 5-FLUOROURACIL (5-FU) [Suspect]
     Active Substance: FLUOROURACIL
     Dates: end: 20180521
  2. CAMPTOSAR [Suspect]
     Active Substance: IRINOTECAN HYDROCHLORIDE
     Dates: end: 20180521
  3. ELOXATIN [Suspect]
     Active Substance: OXALIPLATIN
     Dates: end: 20180521
  4. LEUCOVORIN CALCIUM. [Suspect]
     Active Substance: LEUCOVORIN CALCIUM
     Dates: end: 20180521

REACTIONS (7)
  - Vomiting [None]
  - Abdominal discomfort [None]
  - Diarrhoea [None]
  - Discomfort [None]
  - Abdominal pain [None]
  - Nausea [None]
  - Hunger [None]

NARRATIVE: CASE EVENT DATE: 20180526
